FAERS Safety Report 10498973 (Version 1)
Quarter: 2014Q4

REPORT INFORMATION
  Report Type: Spontaneous
  Country: IT (occurrence: IT)
  Receive Date: 20141006
  Receipt Date: 20141006
  Transmission Date: 20150528
  Serious: Yes (Other)
  Sender: FDA-Public Use
  Company Number: IT-BAUSCH-BL-2014-006238

PATIENT
  Age: 70 Year
  Sex: Male

DRUGS (2)
  1. VISUDYNE [Suspect]
     Active Substance: VERTEPORFIN
     Indication: CHOROIDAL NEOVASCULARISATION
     Dates: start: 201312
  2. VISUDYNE [Suspect]
     Active Substance: VERTEPORFIN
     Dates: start: 20140919, end: 20140919

REACTIONS (4)
  - Sunburn [Recovering/Resolving]
  - Injection site erythema [Recovering/Resolving]
  - Injection site pain [Recovering/Resolving]
  - Drug administration error [Unknown]

NARRATIVE: CASE EVENT DATE: 20140919
